FAERS Safety Report 11525814 (Version 2)
Quarter: 2015Q4

REPORT INFORMATION
  Report Type: Spontaneous
  Country: JP (occurrence: JP)
  Receive Date: 20150918
  Receipt Date: 20151130
  Transmission Date: 20160304
  Serious: Yes (Death, Life-Threatening)
  Sender: FDA-Public Use
  Company Number: JP-BRACCO-009279

PATIENT
  Age: 80 Year
  Sex: Male
  Weight: 72 kg

DRUGS (11)
  1. CLEANAL [Concomitant]
     Active Substance: FUDOSTEINE
  2. FUDOSTEINE [Concomitant]
     Active Substance: FUDOSTEINE
  3. NEXIUM [Concomitant]
     Active Substance: ESOMEPRAZOLE MAGNESIUM
  4. FRANDOL [Concomitant]
     Active Substance: ISOSORBIDE DINITRATE
  5. URIEF [Concomitant]
     Active Substance: SILODOSIN
  6. MAGMITT [Concomitant]
     Active Substance: MAGNESIUM OXIDE
  7. IOPAMIRON [Suspect]
     Active Substance: IOPAMIDOL
     Indication: COMPUTERISED TOMOGRAM
     Route: 042
     Dates: start: 20150706, end: 20150706
  8. WARFARIN [Concomitant]
     Active Substance: WARFARIN
  9. LIVALO [Concomitant]
     Active Substance: PITAVASTATIN CALCIUM
  10. BIOFERMIN R [Concomitant]
     Active Substance: BACILLUS SUBTILIS\LACTOBACILLUS ACIDOPHILUS\STREPTOCOCCUS FAECAIS
  11. NICORANDIL [Concomitant]
     Active Substance: NICORANDIL

REACTIONS (5)
  - Pneumonia aspiration [Fatal]
  - Erythema [Recovered/Resolved]
  - Vomiting [Recovered/Resolved]
  - Aspiration [Recovered/Resolved]
  - Cardio-respiratory arrest [Recovered/Resolved]

NARRATIVE: CASE EVENT DATE: 20150706
